FAERS Safety Report 16730585 (Version 1)
Quarter: 2019Q3

REPORT INFORMATION
  Report Type: Spontaneous
  Country: AR (occurrence: AR)
  Receive Date: 20190822
  Receipt Date: 20190822
  Transmission Date: 20191005
  Serious: Yes (Death, Hospitalization, Other)
  Sender: FDA-Public Use
  Company Number: AR-ROCHE-2379129

PATIENT
  Age: 73 Year
  Sex: Female

DRUGS (1)
  1. ACTEMRA [Suspect]
     Active Substance: TOCILIZUMAB
     Indication: RHEUMATOID ARTHRITIS
     Route: 058

REACTIONS (22)
  - Multiple organ dysfunction syndrome [Fatal]
  - Treatment failure [Unknown]
  - Arthritis bacterial [Fatal]
  - General physical health deterioration [Unknown]
  - Osteoarthritis [Unknown]
  - Depressed level of consciousness [Unknown]
  - Lung infection [Unknown]
  - Shock [Unknown]
  - Tachycardia [Unknown]
  - Acute kidney injury [Unknown]
  - Lividity [Unknown]
  - Lactic acidosis [Unknown]
  - Metabolic acidosis [Unknown]
  - Arthralgia [Unknown]
  - Oedema peripheral [Unknown]
  - Leukocytosis [Unknown]
  - Pleural effusion [Unknown]
  - Anuria [Unknown]
  - Septic shock [Fatal]
  - Hypotension [Unknown]
  - Blood creatine phosphokinase increased [Unknown]
  - Transaminases increased [Unknown]
